FAERS Safety Report 7999254-4 (Version None)
Quarter: 2011Q4

REPORT INFORMATION
  Report Type: 
  Country: None (occurrence: None)
  Receive Date: 20111221
  Receipt Date: 20111219
  Transmission Date: 20120403
  Serious: Yes (Other)
  Sender: FDA-Public Use
  Company Number: DE-ROCHE-1018871

PATIENT
  Sex: Female

DRUGS (8)
  1. METHOTREXATE [Concomitant]
     Indication: RHEUMATOID ARTHRITIS
     Dates: end: 20100707
  2. MORPHIUM [Concomitant]
  3. ACTEMRA [Suspect]
     Indication: RHEUMATOID ARTHRITIS
     Route: 042
     Dates: start: 20091022, end: 20100701
  4. ACTEMRA [Suspect]
     Route: 042
  5. HYDROXYCHLOROQUINE SULFATE [Concomitant]
  6. METHOTREXATE [Concomitant]
     Dates: start: 20100720
  7. PREDNISONE TAB [Concomitant]
  8. ACTEMRA [Suspect]
     Route: 042

REACTIONS (4)
  - HAEMOGLOBIN DECREASED [None]
  - BONE MARROW TOXICITY [None]
  - OSTEOARTHRITIS [None]
  - ANAEMIA [None]
